FAERS Safety Report 4683825-7 (Version None)
Quarter: 2005Q2

REPORT INFORMATION
  Report Type: 
  Country: None (occurrence: None)
  Receive Date: 20050607
  Receipt Date: 20050527
  Transmission Date: 20051028
  Serious: Yes (Hospitalization)
  Sender: FDA-Public Use
  Company Number: GB-JNJFOC-20050600391

PATIENT
  Age: 71 Year
  Sex: Female

DRUGS (6)
  1. TRAMADOL HCL [Suspect]
     Indication: ANALGESIC EFFECT
     Route: 049
     Dates: start: 20050504, end: 20050509
  2. TRAMADOL HCL [Suspect]
     Indication: RENAL COLIC
     Route: 049
     Dates: start: 20050504, end: 20050509
  3. BACLOFEN [Suspect]
     Indication: SPINAL DISORDER
     Route: 049
     Dates: start: 20050504, end: 20050509
  4. ASPRIN [Concomitant]
     Indication: MYOCARDIAL ISCHAEMIA
     Route: 049
  5. FRUSEMIDE [Concomitant]
     Indication: MYOCARDIAL ISCHAEMIA
     Route: 049
  6. SENNA [Concomitant]
     Indication: CONSTIPATION
     Route: 049

REACTIONS (2)
  - DYSKINESIA [None]
  - VOMITING [None]
